FAERS Safety Report 25957431 (Version 1)
Quarter: 2025Q4

REPORT INFORMATION
  Report Type: Spontaneous
  Country: US (occurrence: None)
  Receive Date: 20251024
  Receipt Date: 20251024
  Transmission Date: 20260118
  Serious: Yes (Life-Threatening, Hospitalization, Disabling, Other)
  Sender: FDA-CTU
  Company Number: None

PATIENT
  Age: 41 Year
  Sex: Male
  Weight: 112.5 kg

DRUGS (4)
  1. FLUPHENAZINE HYDROCHLORIDE [Suspect]
     Active Substance: FLUPHENAZINE HYDROCHLORIDE
     Indication: Schizophrenia
     Route: 048
     Dates: start: 20160215
  2. VITAMIN D3 [Suspect]
     Active Substance: CHOLECALCIFEROL
  3. UNSPECIFIED INGREDIENT [Concomitant]
     Active Substance: UNSPECIFIED INGREDIENT
  4. MINOCLYCIN [Concomitant]

REACTIONS (3)
  - Delirium [None]
  - Neuroleptic malignant syndrome [None]
  - Hallucination, auditory [None]

NARRATIVE: CASE EVENT DATE: 20251020
